FAERS Safety Report 4398207-5 (Version None)
Quarter: 2004Q3

REPORT INFORMATION
  Report Type: 
  Country: None (occurrence: None)
  Receive Date: 20040714
  Receipt Date: 20040714
  Transmission Date: 20050211
  Serious: Yes (Hospitalization)
  Sender: FDA-Public Use
  Company Number: None

PATIENT
  Age: 84 Year
  Sex: Female
  Weight: 63.1 kg

DRUGS (7)
  1. ASPIRIN [Suspect]
     Indication: ATRIAL FIBRILLATION
     Dosage: 325 MG PO QD
     Route: 048
  2. IBUPROFEN [Suspect]
     Indication: ARTHRALGIA
     Dosage: 600 MG PO
     Route: 048
  3. METOPROLOL [Concomitant]
  4. CELEXA [Concomitant]
  5. MAGNESIUM [Concomitant]
  6. POTASSIUM [Concomitant]
  7. CLARITIN [Concomitant]

REACTIONS (5)
  - ARTHRALGIA [None]
  - GASTRIC ULCER [None]
  - HYPERSOMNIA [None]
  - LOOSE STOOLS [None]
  - UPPER GASTROINTESTINAL HAEMORRHAGE [None]
